FAERS Safety Report 8461249-4 (Version None)
Quarter: 2012Q2

REPORT INFORMATION
  Report Type: 
  Country: None (occurrence: None)
  Receive Date: 20120625
  Receipt Date: 20120611
  Transmission Date: 20120825
  Serious: Yes (Other)
  Sender: FDA-Public Use
  Company Number: IN-RANBAXY-2012RR-57150

PATIENT
  Age: 35 Year
  Sex: Female

DRUGS (6)
  1. CLOZAPINE [Interacting]
     Dosage: 200 MG/DAY
     Route: 065
  2. CLOZAPINE [Interacting]
     Dosage: 400 MG/DAY
     Route: 065
  3. RISPERIDONE [Suspect]
     Indication: PSYCHOTIC DISORDER
     Dosage: 4 MG/DAY
     Route: 065
  4. CLOZAPINE [Interacting]
     Indication: SCHIZOPHRENIA, PARANOID TYPE
     Dosage: 25 MG/DAY
     Route: 065
  5. VALPROIC ACID [Interacting]
     Indication: GRAND MAL CONVULSION
     Dosage: 1000 MG/DAY
     Route: 065
  6. RISPERIDONE [Interacting]
     Dosage: 4 MG/DAY
     Route: 065

REACTIONS (3)
  - DRUG INTERACTION [None]
  - GRAND MAL CONVULSION [None]
  - ASTERIXIS [None]
